FAERS Safety Report 4378180-6 (Version None)
Quarter: 2004Q2

REPORT INFORMATION
  Report Type: 
  Country: None (occurrence: None)
  Receive Date: 20040614
  Receipt Date: 20040614
  Transmission Date: 20050107
  Serious: Yes (Life-Threatening, Other)
  Sender: FDA-Public Use
  Company Number: None

PATIENT
  Age: 81 Year
  Sex: Male
  Weight: 54.8852 kg

DRUGS (2)
  1. THEOCHROM [Suspect]
     Indication: CHRONIC OBSTRUCTIVE AIRWAYS DISEASE
     Dosage: 1 TIME
  2. THEOCHROM [Suspect]
     Indication: PSEUDOMONAS INFECTION
     Dosage: 1 TIME

REACTIONS (8)
  - ARTHRALGIA [None]
  - DEAFNESS [None]
  - DYSGRAPHIA [None]
  - HEADACHE [None]
  - HYPOACUSIS [None]
  - PAIN IN EXTREMITY [None]
  - TREMOR [None]
  - VISUAL ACUITY REDUCED [None]
